FAERS Safety Report 5103845-8 (Version None)
Quarter: 2006Q3

REPORT INFORMATION
  Report Type: 
  Country: None (occurrence: None)
  Receive Date: 20060913
  Receipt Date: 20060420
  Transmission Date: 20061208
  Serious: Yes (Other)
  Sender: FDA-Public Use
  Company Number: US-GLAXOSMITHKLINE-A0602621A

PATIENT
  Age: 41 Year
  Sex: Male

DRUGS (3)
  1. PAXIL [Suspect]
     Dosage: 10MG PER DAY
     Route: 048
  2. ZOCOR [Concomitant]
  3. PROTONIX [Concomitant]

REACTIONS (4)
  - ADVERSE EVENT [None]
  - EJACULATION DISORDER [None]
  - FAECAL INCONTINENCE [None]
  - RECTAL DISCHARGE [None]
